FAERS Safety Report 12453473 (Version 1)
Quarter: 2016Q2

REPORT INFORMATION
  Report Type: Spontaneous
  Country: FR (occurrence: FR)
  Receive Date: 20160609
  Receipt Date: 20160609
  Transmission Date: 20160815
  Serious: Yes (Hospitalization)
  Sender: FDA-Public Use
  Company Number: FR-ASTRAZENECA-2016SE59560

PATIENT
  Age: 29902 Day
  Sex: Female

DRUGS (9)
  1. INEXIUM [Suspect]
     Active Substance: ESOMEPRAZOLE
     Indication: GASTROOESOPHAGEAL REFLUX DISEASE
     Route: 048
     Dates: start: 2011, end: 20140806
  2. VALSARTAN. [Concomitant]
     Active Substance: VALSARTAN
  3. ZOPICLONE [Concomitant]
     Active Substance: ZOPICLONE
  4. KARDEGIC [Concomitant]
     Active Substance: ASPIRIN LYSINE
  5. ACARBOSE. [Concomitant]
     Active Substance: ACARBOSE
  6. GLUCOPHAGE [Concomitant]
     Active Substance: METFORMIN HYDROCHLORIDE
  7. CACIT VITAMIN D 3 [Concomitant]
  8. INEXIUM [Suspect]
     Active Substance: ESOMEPRAZOLE
     Indication: GASTROOESOPHAGEAL REFLUX DISEASE
     Route: 048
     Dates: start: 20140825, end: 20140828
  9. DEROXAT [Suspect]
     Active Substance: PAROXETINE HYDROCHLORIDE
     Route: 048
     Dates: start: 2011, end: 20140805

REACTIONS (4)
  - Urinary retention [Unknown]
  - Hyponatraemia [Recovered/Resolved]
  - Constipation [Unknown]
  - Confusional state [Unknown]

NARRATIVE: CASE EVENT DATE: 20140805
